FAERS Safety Report 17820828 (Version 7)
Quarter: 2025Q1

REPORT INFORMATION
  Report Type: Report from Study
  Country: US (occurrence: US)
  Receive Date: 20200525
  Receipt Date: 20250217
  Transmission Date: 20250409
  Serious: No
  Sender: TAKEDA
  Company Number: US-SHIRE-US202017257

PATIENT
  Age: 73 Year
  Sex: Female
  Weight: 87 kg

DRUGS (41)
  1. HUMAN IMMUNOGLOBULIN G [Suspect]
     Active Substance: HUMAN IMMUNOGLOBULIN G
     Indication: Immunodeficiency common variable
     Dosage: 20 GRAM, Q2WEEKS
     Dates: start: 20180606
  2. HUMAN IMMUNOGLOBULIN G [Suspect]
     Active Substance: HUMAN IMMUNOGLOBULIN G
     Dosage: 20 GRAM, Q2WEEKS
     Dates: start: 20180608
  3. HUMAN IMMUNOGLOBULIN G [Suspect]
     Active Substance: HUMAN IMMUNOGLOBULIN G
     Dosage: 20 GRAM, Q2WEEKS
     Dates: start: 20181019
  4. GABAPENTIN [Concomitant]
     Active Substance: GABAPENTIN
  5. TAMIFLU [Concomitant]
     Active Substance: OSELTAMIVIR PHOSPHATE
  6. CELEBREX [Concomitant]
     Active Substance: CELECOXIB
  7. IPRATROPIUM [Concomitant]
     Active Substance: IPRATROPIUM
  8. VIVELLE-DOT [Concomitant]
     Active Substance: ESTRADIOL
  9. EXFORGE [Concomitant]
     Active Substance: AMLODIPINE BESYLATE\VALSARTAN
  10. ASPIRIN [Concomitant]
     Active Substance: ASPIRIN
  11. MYRBETRIQ [Concomitant]
     Active Substance: MIRABEGRON
  12. NEXIUM [Concomitant]
     Active Substance: ESOMEPRAZOLE MAGNESIUM
  13. PREDNISONE [Concomitant]
     Active Substance: PREDNISONE
  14. PRAVASTATIN [Concomitant]
     Active Substance: PRAVASTATIN
  15. HYOSCYAMINE [Concomitant]
     Active Substance: HYOSCYAMINE
  16. VITAMIN D [Concomitant]
     Active Substance: VITAMIN D NOS
  17. NASACORT [Concomitant]
     Active Substance: TRIAMCINOLONE ACETONIDE
  18. CIPRO [Concomitant]
     Active Substance: CIPROFLOXACIN HYDROCHLORIDE
  19. ZYRTEC [Concomitant]
     Active Substance: CETIRIZINE HYDROCHLORIDE
  20. MECLIZINE HYDROCHLORIDE [Concomitant]
     Active Substance: MECLIZINE HYDROCHLORIDE
  21. CALCIUM [Concomitant]
     Active Substance: CALCIUM
  22. TOPROL XL [Concomitant]
     Active Substance: METOPROLOL SUCCINATE
  23. ACETAMINOPHEN [Concomitant]
     Active Substance: ACETAMINOPHEN
  24. DIPHENHYDRAMINE [Concomitant]
     Active Substance: DIPHENHYDRAMINE
  25. LIDOCAINE [Concomitant]
     Active Substance: LIDOCAINE
  26. EPINEPHRINE [Concomitant]
     Active Substance: EPINEPHRINE
  27. IPRATROPIUM BROMIDE [Concomitant]
     Active Substance: IPRATROPIUM BROMIDE
  28. HYOSCYAMINE SULFATE [Concomitant]
     Active Substance: HYOSCYAMINE SULFATE
  29. TROSPIUM [Concomitant]
     Active Substance: TROSPIUM
  30. CLARITIN-D NOS [Concomitant]
     Active Substance: LORATADINE\PSEUDOEPHEDRINE SULFATE
  31. CALCIUM\CHOLECALCIFEROL\MAGNESIUM [Concomitant]
     Active Substance: CALCIUM\CHOLECALCIFEROL\MAGNESIUM
  32. TROSPIUM CHLORIDE [Concomitant]
     Active Substance: TROSPIUM CHLORIDE
  33. EXFORGE HCT [Concomitant]
     Active Substance: AMLODIPINE BESYLATE\HYDROCHLOROTHIAZIDE\VALSARTAN
  34. CRANBERRY [Concomitant]
     Active Substance: CRANBERRY
  35. PRAVASTATIN SODIUM [Concomitant]
     Active Substance: PRAVASTATIN SODIUM
  36. TIZANIDINE HYDROCHLORIDE [Concomitant]
     Active Substance: TIZANIDINE HYDROCHLORIDE
  37. MONTELUKAST SODIUM [Concomitant]
     Active Substance: MONTELUKAST SODIUM
  38. DIPHENHYDRAMINE HYDROCHLORIDE [Concomitant]
     Active Substance: DIPHENHYDRAMINE HYDROCHLORIDE
  39. AIMOVIG [Concomitant]
     Active Substance: ERENUMAB-AOOE
  40. FOSFOMYCIN TROMETHAMINE [Concomitant]
     Active Substance: FOSFOMYCIN TROMETHAMINE
  41. AMLODIPINE BESYLATE;BENAZEPRIL [Concomitant]

REACTIONS (9)
  - Urinary tract infection [Recovered/Resolved]
  - Sinusitis [Unknown]
  - Neck pain [Unknown]
  - Nerve compression [Unknown]
  - COVID-19 [Not Recovered/Not Resolved]
  - Product dose omission issue [Unknown]
  - Inappropriate schedule of product administration [Unknown]
  - Influenza [Unknown]
  - Migraine [Unknown]

NARRATIVE: CASE EVENT DATE: 20220609
